FAERS Safety Report 15432356 (Version 2)
Quarter: 2018Q4

REPORT INFORMATION
  Report Type: Spontaneous
  Country: DE (occurrence: DE)
  Receive Date: 20180926
  Receipt Date: 20181003
  Transmission Date: 20190204
  Serious: Yes (Life-Threatening, Hospitalization)
  Sender: FDA-Public Use
  Company Number: DE-UCBSA-2018043275

PATIENT
  Age: 59 Year
  Sex: Female

DRUGS (1)
  1. PROSTAVASIN [Suspect]
     Active Substance: ALPROSTADIL ALFADEX
     Indication: PRODUCT USED FOR UNKNOWN INDICATION
     Dosage: HIGH DOSE

REACTIONS (4)
  - Sepsis [Unknown]
  - Hepatic vein thrombosis [Unknown]
  - Vascular device infection [Unknown]
  - Leukopenia [Unknown]

NARRATIVE: CASE EVENT DATE: 2016
